FAERS Safety Report 6423457-3 (Version None)
Quarter: 2009Q4

REPORT INFORMATION
  Report Type: 
  Country: None (occurrence: None)
  Receive Date: 20091102
  Receipt Date: 20091023
  Transmission Date: 20100525
  Serious: Yes (Other)
  Sender: FDA-Public Use
  Company Number: B0599696A

PATIENT
  Sex: Male

DRUGS (1)
  1. LAMICTAL [Suspect]
     Dosage: 50MG TWICE PER DAY
     Route: 048
     Dates: start: 20010701

REACTIONS (13)
  - DEPRESSED MOOD [None]
  - DYSPNOEA [None]
  - EAR INFECTION [None]
  - EMOTIONAL DISORDER [None]
  - FATIGUE [None]
  - INFLUENZA LIKE ILLNESS [None]
  - IRRITABILITY [None]
  - LYMPHADENOPATHY [None]
  - PALPITATIONS [None]
  - PHOTOSENSITIVITY REACTION [None]
  - RASH [None]
  - RASH ERYTHEMATOUS [None]
  - SUICIDAL IDEATION [None]
